FAERS Safety Report 21402473 (Version 1)
Quarter: 2022Q4

REPORT INFORMATION
  Report Type: Spontaneous
  Country: CA (occurrence: CA)
  Receive Date: 20221003
  Receipt Date: 20221003
  Transmission Date: 20230112
  Serious: Yes (Hospitalization)
  Sender: FDA-Public Use
  Company Number: CA-002147023-NVSC2022CA214501

PATIENT
  Age: 42 Year
  Sex: Female

DRUGS (2)
  1. OMALIZUMAB [Suspect]
     Active Substance: OMALIZUMAB
     Indication: Asthma
     Dosage: 300 MG
     Route: 058
  2. AZITHROMYCIN [Suspect]
     Active Substance: AZITHROMYCIN
     Indication: Product used for unknown indication
     Dosage: UNK
     Route: 065

REACTIONS (23)
  - Abdominal pain [Unknown]
  - Anxiety [Unknown]
  - Bone contusion [Unknown]
  - Bronchitis [Unknown]
  - Concussion [Unknown]
  - Erythema [Unknown]
  - Gastric ulcer [Unknown]
  - Heart rate increased [Unknown]
  - Hepatic steatosis [Unknown]
  - Herpes zoster [Unknown]
  - Illness [Unknown]
  - Immunodeficiency [Unknown]
  - Injury [Unknown]
  - Oropharyngeal pain [Unknown]
  - Post-traumatic neck syndrome [Unknown]
  - Road traffic accident [Unknown]
  - Sensitivity to weather change [Unknown]
  - Swelling [Unknown]
  - Urticaria [Unknown]
  - Pruritus [Unknown]
  - Drug hypersensitivity [Unknown]
  - Headache [Unknown]
  - Nasopharyngitis [Unknown]
